FAERS Safety Report 4353234-9 (Version None)
Quarter: 2004Q2

REPORT INFORMATION
  Report Type: 
  Country: None (occurrence: None)
  Receive Date: 20040430
  Receipt Date: 20040423
  Transmission Date: 20050107
  Serious: No
  Sender: FDA-Public Use
  Company Number: B0331008A

PATIENT
  Age: 52 Year
  Sex: Female

DRUGS (1)
  1. AMOXICILLIN TRIHYDRATE [Suspect]

REACTIONS (4)
  - CHEST DISCOMFORT [None]
  - MEDICATION ERROR [None]
  - NAUSEA [None]
  - SWELLING FACE [None]
